FAERS Safety Report 17675115 (Version 3)
Quarter: 2021Q3

REPORT INFORMATION
  Report Type: Spontaneous
  Country: US (occurrence: US)
  Receive Date: 20200416
  Receipt Date: 20210802
  Transmission Date: 20211014
  Serious: Yes (Death)
  Sender: FDA-Public Use
  Company Number: US-TEVA-2020-US-1222238

PATIENT
  Sex: Female

DRUGS (3)
  1. ATORVASTATIN CALCIUM 10 MG TABLET [Concomitant]
     Route: 065
  2. AUSTEDO [Suspect]
     Active Substance: DEUTETRABENAZINE
     Indication: CHOREA
     Dosage: 48 MILLIGRAM DAILY;
     Route: 048
     Dates: start: 2019
  3. AUSTEDO [Suspect]
     Active Substance: DEUTETRABENAZINE
     Indication: HUNTINGTON^S DISEASE

REACTIONS (6)
  - Crying [Unknown]
  - Speech disorder [Unknown]
  - Obsessive thoughts [Unknown]
  - Abnormal behaviour [Unknown]
  - Death [Fatal]
  - Mood swings [Unknown]
